FAERS Safety Report 17279125 (Version 1)
Quarter: 2020Q1

REPORT INFORMATION
  Report Type: Spontaneous
  Country: US (occurrence: US)
  Receive Date: 20200116
  Receipt Date: 20200116
  Transmission Date: 20200409
  Serious: No
  Sender: FDA-Public Use
  Company Number: US-BAYER-2019-236254

PATIENT
  Sex: Female

DRUGS (2)
  1. CLIMARA [Suspect]
     Active Substance: ESTRADIOL
     Route: 062
  2. ESTRADIOL. [Suspect]
     Active Substance: ESTRADIOL
     Route: 062

REACTIONS (6)
  - Nausea [Recovered/Resolved]
  - Night sweats [Recovered/Resolved]
  - Drug intolerance [None]
  - Headache [Recovered/Resolved]
  - Mood altered [Recovered/Resolved]
  - Memory impairment [Recovered/Resolved]
